FAERS Safety Report 24681316 (Version 2)
Quarter: 2024Q4

REPORT INFORMATION
  Report Type: Spontaneous
  Country: FR (occurrence: FR)
  Receive Date: 20241129
  Receipt Date: 20241212
  Transmission Date: 20250115
  Serious: Yes (Hospitalization)
  Sender: TEVA
  Company Number: None

PATIENT
  Age: 31 Year
  Sex: Female
  Weight: 55 kg

DRUGS (4)
  1. FLUDARABINE [Suspect]
     Active Substance: FLUDARABINE PHOSPHATE
     Indication: Acute myeloid leukaemia
     Dosage: FLUDARABINE PHOSPHATE 40 MG/M2/DAY OR 53.25 MG/DAY FROM D-6 TO D-3 (TOTAL DOSE OF 225 MG)
     Route: 042
     Dates: start: 20240816
  2. BUSULFAN [Suspect]
     Active Substance: BUSULFAN
     Indication: Acute myeloid leukaemia
     Dosage: 3.25 MG/KG/DAY OR 177 MG/DAY FROM D-6 TO D-3 (TOTAL DOSE OF 708 MG)
     Route: 042
     Dates: start: 20240816
  3. CYCLOSPORINE [Suspect]
     Active Substance: CYCLOSPORINE
     Indication: Prophylaxis against graft versus host disease
     Dosage: 3 MG/KG/DAY OVER 24 HOURS INITIATED ON DAY 1 THEN ADAPTED TO PLASMA DOSAGES
     Route: 042
     Dates: start: 20240720
  4. CYTARABINE [Suspect]
     Active Substance: CYTARABINE
     Indication: Acute myeloid leukaemia
     Dosage: AT INTERMEDIATE DOSE J1
     Route: 058
     Dates: start: 20240614

REACTIONS (1)
  - Pulmonary hypertension [Not Recovered/Not Resolved]

NARRATIVE: CASE EVENT DATE: 20241104
